FAERS Safety Report 8818105 (Version 4)
Quarter: 2012Q4

REPORT INFORMATION
  Report Type: 
  Country: JP (occurrence: JP)
  Receive Date: 20121001
  Receipt Date: 20121112
  Transmission Date: 20130627
  Serious: Yes (Hospitalization)
  Sender: FDA-Public Use
  Company Number: JP-ASTRAZENECA-2012SE70218

PATIENT
  Age: 42 Year
  Sex: Male
  Weight: 75 kg

DRUGS (12)
  1. CRESTOR [Suspect]
     Indication: HYPERCHOLESTEROLAEMIA
     Route: 048
     Dates: start: 20120803, end: 20120816
  2. CRESTOR [Suspect]
     Indication: HYPERCHOLESTEROLAEMIA
     Route: 048
     Dates: start: 20120817, end: 20120819
  3. CRESTOR [Suspect]
     Indication: HYPERCHOLESTEROLAEMIA
     Route: 048
     Dates: start: 20120820, end: 20120831
  4. CRESTOR [Suspect]
     Indication: HYPERCHOLESTEROLAEMIA
     Route: 048
     Dates: start: 20120926
  5. BAYASPIRIN [Suspect]
     Indication: STENT PLACEMENT
     Route: 048
     Dates: start: 20120802
  6. PARIET [Suspect]
     Indication: STRESS ULCER
     Route: 048
     Dates: start: 20120803
  7. MAINTATE [Suspect]
     Indication: CARDIAC FAILURE
     Route: 048
     Dates: start: 20120817, end: 20120819
  8. MAINTATE [Suspect]
     Indication: CARDIAC FAILURE
     Route: 048
     Dates: start: 20120820, end: 20120830
  9. PLAVIX [Suspect]
     Indication: STENT PLACEMENT
     Route: 048
     Dates: start: 20120802, end: 20120830
  10. TANATRIL [Suspect]
     Indication: HYPERTENSION
     Route: 048
     Dates: start: 20120806, end: 20120831
  11. DIART [Suspect]
     Indication: CARDIAC FAILURE
     Route: 048
     Dates: start: 20120806, end: 20120830
  12. PIROLACTON [Suspect]
     Indication: CARDIAC FAILURE
     Route: 048
     Dates: start: 20120804, end: 20120831

REACTIONS (3)
  - Liver disorder [Recovering/Resolving]
  - Malaise [Recovered/Resolved]
  - Dizziness [Recovered/Resolved]
